FAERS Safety Report 10213005 (Version 1)
Quarter: 2014Q2

REPORT INFORMATION
  Report Type: Spontaneous
  Country: GB (occurrence: GB)
  Receive Date: 20140602
  Receipt Date: 20140602
  Transmission Date: 20141212
  Serious: Yes (Other)
  Sender: FDA-Public Use
  Company Number: GB-DRREDDYS-GER/UKI/14/0040746

PATIENT
  Age: 17 Year
  Sex: Female

DRUGS (8)
  1. OLANZAPINE [Suspect]
     Indication: POST-TRAUMATIC STRESS DISORDER
  2. OLANZAPINE [Suspect]
     Indication: AUTISM SPECTRUM DISORDER
  3. CITALOPRAM [Suspect]
     Indication: POST-TRAUMATIC STRESS DISORDER
  4. CITALOPRAM [Suspect]
     Indication: AUTISM SPECTRUM DISORDER
  5. DIAZEPAM [Suspect]
     Indication: POST-TRAUMATIC STRESS DISORDER
  6. DIAZEPAM [Suspect]
     Indication: AUTISM SPECTRUM DISORDER
  7. VALIUM [Suspect]
     Indication: POST-TRAUMATIC STRESS DISORDER
  8. VALIUM [Suspect]
     Indication: AUTISM SPECTRUM DISORDER

REACTIONS (3)
  - Anxiety [Unknown]
  - Depression [Unknown]
  - Psychotic disorder [Unknown]
